FAERS Safety Report 6909142-X (Version None)
Quarter: 2010Q3

REPORT INFORMATION
  Report Type: 
  Country: None (occurrence: None)
  Receive Date: 20100805
  Receipt Date: 20081214
  Transmission Date: 20110219
  Serious: Yes (Other)
  Sender: FDA-Public Use
  Company Number: US-PFIZER INC-2008090289

PATIENT
  Sex: Female
  Weight: 99.773 kg

DRUGS (17)
  1. LYRICA [Suspect]
     Indication: FIBROMYALGIA
     Dosage: 50 MG, 3X/DAY
     Route: 048
     Dates: start: 20050101
  2. SPIRIVA [Concomitant]
  3. ALBUTEROL [Concomitant]
  4. FLONASE [Concomitant]
  5. DYAZIDE [Concomitant]
  6. ZOLOFT [Concomitant]
  7. KLONOPIN [Concomitant]
  8. MORPHINE SULFATE [Concomitant]
  9. MORPHINE [Concomitant]
  10. TRAZODONE [Concomitant]
  11. POTASSIUM [Concomitant]
  12. MOBIC [Concomitant]
  13. VERAPAMIL [Concomitant]
  14. LISINOPRIL [Concomitant]
  15. ZANTAC [Concomitant]
  16. PRILOSEC [Concomitant]
  17. OXYCODONE [Concomitant]
     Dosage: UNK

REACTIONS (5)
  - CONSTIPATION [None]
  - DYSPNOEA [None]
  - OROPHARYNGEAL PAIN [None]
  - WEIGHT INCREASED [None]
  - WHEEZING [None]
